FAERS Safety Report 20967361 (Version 3)
Quarter: 2022Q4

REPORT INFORMATION
  Report Type: Report from Study
  Country: US (occurrence: US)
  Receive Date: 20220616
  Receipt Date: 20221005
  Transmission Date: 20230113
  Serious: Yes (Hospitalization, Other)
  Sender: FDA-Public Use
  Company Number: US-BIOVITRUM-2022US00572

PATIENT
  Age: 59 Year
  Sex: Male

DRUGS (3)
  1. KINERET [Suspect]
     Active Substance: ANAKINRA
     Indication: Still^s disease
     Dates: start: 20190529
  2. KINERET [Suspect]
     Active Substance: ANAKINRA
     Dates: start: 201905
  3. KINERET [Suspect]
     Active Substance: ANAKINRA
     Dates: start: 202112

REACTIONS (23)
  - Cerebrovascular accident [Unknown]
  - Injection site haemorrhage [Unknown]
  - Spinal cord disorder [Unknown]
  - Renal disorder [Unknown]
  - Hernia [Unknown]
  - Fatigue [Unknown]
  - Peripheral swelling [Unknown]
  - Hypoaesthesia [Unknown]
  - Feeling cold [Unknown]
  - Pain [Unknown]
  - Feeling abnormal [Unknown]
  - Burning sensation [Unknown]
  - Chills [Unknown]
  - Pain in extremity [Unknown]
  - Cough [Unknown]
  - Dizziness [Unknown]
  - Vertigo [Unknown]
  - Epistaxis [Unknown]
  - Visual impairment [Unknown]
  - Asthenia [Unknown]
  - Nasal discharge discolouration [Unknown]
  - Injection site bruising [Unknown]
  - Off label use [Unknown]

NARRATIVE: CASE EVENT DATE: 20190501
